FAERS Safety Report 9485086 (Version 1)
Quarter: 2013Q3

REPORT INFORMATION
  Report Type: Report from Study
  Country: US (occurrence: US)
  Receive Date: 20130828
  Receipt Date: 20130828
  Transmission Date: 20140515
  Serious: No
  Sender: FDA-Public Use
  Company Number: US-ABBOTT-13P-163-1108897-00

PATIENT
  Sex: Male
  Weight: 138.47 kg

DRUGS (5)
  1. ANDROGEL [Suspect]
     Indication: BLOOD TESTOSTERONE DECREASED
     Dosage: 2 PUMPS
     Dates: start: 201305
  2. ANDROGEL [Suspect]
     Indication: LETHARGY
  3. ANDROGEL [Suspect]
     Indication: ASTHENIA
  4. DIVALPROEX SODIUM [Concomitant]
     Indication: CONVULSION
  5. CITALOPRAM [Concomitant]
     Indication: ANXIETY

REACTIONS (3)
  - Blood oestrogen increased [Not Recovered/Not Resolved]
  - Weight loss poor [Not Recovered/Not Resolved]
  - Acne [Not Recovered/Not Resolved]
